FAERS Safety Report 15320213 (Version 1)
Quarter: 2018Q3

REPORT INFORMATION
  Report Type: Report from Study
  Country: DE (occurrence: DE)
  Receive Date: 20180827
  Receipt Date: 20180827
  Transmission Date: 20181010
  Serious: Yes (Other)
  Sender: FDA-Public Use
  Company Number: DE-ROCHE-2173384

PATIENT
  Age: 63 Year
  Sex: Male

DRUGS (5)
  1. DULOXETINE. [Concomitant]
     Active Substance: DULOXETINE
     Route: 065
  2. PANTOPRAZOL [Concomitant]
     Active Substance: PANTOPRAZOLE SODIUM
  3. BACLOFEN. [Concomitant]
     Active Substance: BACLOFEN
     Route: 065
  4. OCREVUS [Suspect]
     Active Substance: OCRELIZUMAB
     Indication: PRIMARY PROGRESSIVE MULTIPLE SCLEROSIS
     Route: 042
     Dates: start: 20180705
  5. GABAPENTIN. [Concomitant]
     Active Substance: GABAPENTIN
     Route: 065

REACTIONS (6)
  - Hypoaesthesia [Not Recovered/Not Resolved]
  - Muscular weakness [Unknown]
  - Borrelia infection [Unknown]
  - Musculoskeletal stiffness [Unknown]
  - Myalgia [Not Recovered/Not Resolved]
  - Arthralgia [Not Recovered/Not Resolved]

NARRATIVE: CASE EVENT DATE: 20180808
